FAERS Safety Report 25553370 (Version 1)
Quarter: 2025Q3

REPORT INFORMATION
  Report Type: Spontaneous
  Country: CH (occurrence: CH)
  Receive Date: 20250715
  Receipt Date: 20250715
  Transmission Date: 20251020
  Serious: Yes (Hospitalization, Other)
  Sender: BRISTOL-MYERS SQUIBB COMPANY
  Company Number: CH-BRISTOL-MYERS SQUIBB COMPANY-2025-098180

PATIENT
  Age: 4 Year
  Sex: Female

DRUGS (1)
  1. ELIQUIS [Suspect]
     Active Substance: APIXABAN
     Indication: Thrombosis prophylaxis

REACTIONS (13)
  - Thrombosis [Unknown]
  - Endocarditis [Unknown]
  - Multiple organ dysfunction syndrome [Unknown]
  - Gastroenteritis [Unknown]
  - Hypoxia [Unknown]
  - Seizure [Unknown]
  - Hypoglycaemia [Unknown]
  - Cardiac failure acute [Unknown]
  - Hypovolaemia [Unknown]
  - Septic shock [Unknown]
  - Coagulopathy [Unknown]
  - Vomiting [Unknown]
  - Diarrhoea [Unknown]
